FAERS Safety Report 11221883 (Version 2)
Quarter: 2015Q3

REPORT INFORMATION
  Report Type: Report from Study
  Country: JP (occurrence: JP)
  Receive Date: 20150626
  Receipt Date: 20150730
  Transmission Date: 20151125
  Serious: Yes (Death, Life-Threatening, Other)
  Sender: FDA-Public Use
  Company Number: JP-GLAXOSMITHKLINE-JP2015JPN088390

PATIENT
  Age: 72 Year
  Sex: Male

DRUGS (118)
  1. RESTAMIN [Concomitant]
     Active Substance: DIPHENHYDRAMINE
     Dosage: 40 MG, UNK
     Dates: start: 20141120, end: 20141120
  2. BAKTAR [Concomitant]
     Active Substance: SULFAMETHOXAZOLE\TRIMETHOPRIM
     Dosage: 1 DF, UNK
     Dates: start: 20141118, end: 20141207
  3. ETODOLAC. [Concomitant]
     Active Substance: ETODOLAC
     Dosage: 400 MG, UNK
     Dates: start: 20141104, end: 20141207
  4. MAGMITT [Concomitant]
     Active Substance: MAGNESIUM OXIDE
     Dosage: 330 MG, UNK
     Dates: start: 20141206, end: 20141206
  5. SOLDEM 3A [Concomitant]
     Active Substance: CARBOHYDRATES\POTASSIUM CHLORIDE\SODIUM CHLORIDE\SODIUM LACTATE
     Dosage: 1000 ML, UNK
     Dates: start: 20141015, end: 20141015
  6. PLATELETS [Concomitant]
     Active Substance: HUMAN PLATELET, ALLOGENIC
     Dosage: 1 DF, UNK
     Dates: start: 20141024, end: 20141024
  7. SOLITA-T NO.1 [Concomitant]
     Dosage: 1000 ML, UNK
     Dates: start: 20141113, end: 20141113
  8. LOXOPROFEN [Concomitant]
     Active Substance: LOXOPROFEN
     Dosage: 60 MG, UNK
     Dates: start: 20141120, end: 20141120
  9. OFATUMUMAB [Suspect]
     Active Substance: OFATUMUMAB
     Dosage: 2000 MG, QD
     Route: 041
     Dates: start: 20141204, end: 20141204
  10. BETAMETASONE [Suspect]
     Active Substance: BETAMETHASONE
     Indication: CHRONIC LYMPHOCYTIC LEUKAEMIA
     Dosage: 4 MG, UNK
     Route: 048
     Dates: start: 20141015, end: 20141030
  11. CALONAL [Concomitant]
     Active Substance: ACETAMINOPHEN
     Dosage: 400 MG, UNK
     Dates: start: 20141023, end: 20141023
  12. CALONAL [Concomitant]
     Active Substance: ACETAMINOPHEN
     Dosage: 400 MG, UNK
     Dates: start: 20141113, end: 20141113
  13. POLYGLOBIN-N [Concomitant]
     Indication: INFECTION PROPHYLAXIS
     Dosage: 10 G, UNK
     Dates: start: 20141024, end: 20141024
  14. LYRICA [Concomitant]
     Active Substance: PREGABALIN
     Dosage: 75 MG, UNK
     Dates: start: 20141015, end: 20141207
  15. MAGMITT [Concomitant]
     Active Substance: MAGNESIUM OXIDE
     Dosage: 990 MG, UNK
     Dates: start: 20141029, end: 20141029
  16. MAGMITT [Concomitant]
     Active Substance: MAGNESIUM OXIDE
     Dosage: 1980 MG, UNK
     Dates: start: 20141121, end: 20141127
  17. CHINESE MEDICINE [Concomitant]
     Active Substance: UNSPECIFIED INGREDIENT
     Dosage: 7.5 G, UNK
     Dates: start: 20141115, end: 20141207
  18. FUROSEMIDE. [Concomitant]
     Active Substance: FUROSEMIDE
     Dosage: 20 MG, UNK
     Dates: start: 20141030, end: 20141030
  19. FUROSEMIDE. [Concomitant]
     Active Substance: FUROSEMIDE
     Dosage: 20 MG, UNK
     Dates: start: 20141206, end: 20141206
  20. SOLDEM 3A [Concomitant]
     Active Substance: CARBOHYDRATES\POTASSIUM CHLORIDE\SODIUM CHLORIDE\SODIUM LACTATE
     Dosage: 1000 ML, UNK
     Dates: start: 20141030, end: 20141030
  21. SOLDEM 3A [Concomitant]
     Active Substance: CARBOHYDRATES\POTASSIUM CHLORIDE\SODIUM CHLORIDE\SODIUM LACTATE
     Dosage: 500 ML, UNK
     Dates: start: 20141128, end: 20141128
  22. MEYLON [Concomitant]
     Active Substance: SODIUM BICARBONATE
     Dosage: 80 ML, UNK
     Dates: start: 20141120, end: 20141120
  23. IRRADIATED RED CELLS CONCENTRATES-LEUKOCYTES REDUCED [Concomitant]
     Active Substance: HUMAN RED BLOOD CELL
     Dosage: 1 DF, UNK
     Dates: start: 20141107, end: 20141107
  24. OFATUMUMAB [Suspect]
     Active Substance: OFATUMUMAB
     Dosage: 2000 MG, QD
     Route: 041
     Dates: start: 20141113, end: 20141113
  25. PREDONIN [Suspect]
     Active Substance: PREDNISOLONE
     Dosage: 100 MG, UNK
     Dates: start: 20141127, end: 20141127
  26. CALONAL [Concomitant]
     Active Substance: ACETAMINOPHEN
     Dosage: 400 MG, UNK
     Dates: start: 20141120, end: 20141120
  27. RESTAMIN [Concomitant]
     Active Substance: DIPHENHYDRAMINE
     Dosage: 40 MG, UNK
     Dates: start: 20141113, end: 20141113
  28. RESTAMIN [Concomitant]
     Active Substance: DIPHENHYDRAMINE
     Dosage: 40 MG, UNK
     Dates: start: 20141204, end: 20141204
  29. MAGMITT [Concomitant]
     Active Substance: MAGNESIUM OXIDE
     Dosage: 1980 MG, UNK
     Dates: start: 20141107, end: 20141113
  30. MAGMITT [Concomitant]
     Active Substance: MAGNESIUM OXIDE
     Dosage: 1980 MG, UNK
     Dates: start: 20141129, end: 20141205
  31. ALINAMIN F [Concomitant]
     Active Substance: FURSULTIAMINE HYDROCHLORIDE
     Dosage: 50 MG, UNK
     Dates: start: 20141015, end: 20141027
  32. FEBURIC [Concomitant]
     Active Substance: FEBUXOSTAT
     Dosage: 20 MG, UNK
     Dates: start: 20141028, end: 20141207
  33. FUROSEMIDE. [Concomitant]
     Active Substance: FUROSEMIDE
     Dosage: 20 MG, UNK
     Dates: start: 20141113, end: 20141113
  34. MEYLON [Concomitant]
     Active Substance: SODIUM BICARBONATE
     Dosage: 80 ML, UNK
     Dates: start: 20141127, end: 20141127
  35. LOXOPROFEN [Concomitant]
     Active Substance: LOXOPROFEN
     Dosage: 60 MG, UNK
     Dates: start: 20141108, end: 20141108
  36. SENNOSIDE [Concomitant]
     Active Substance: SENNOSIDES
     Dosage: 12 MG, UNK
     Dates: start: 20141124, end: 20141124
  37. OFATUMUMAB [Suspect]
     Active Substance: OFATUMUMAB
     Indication: CHRONIC LYMPHOCYTIC LEUKAEMIA
     Dosage: 300 MG, QD
     Route: 041
     Dates: start: 20141015, end: 20141015
  38. OFATUMUMAB [Suspect]
     Active Substance: OFATUMUMAB
     Dosage: 2000 MG, QD
     Route: 041
     Dates: start: 20141023, end: 20141023
  39. MAGMITT [Concomitant]
     Active Substance: MAGNESIUM OXIDE
     Dosage: 1320 MG, UNK
     Dates: start: 20141114, end: 20141114
  40. HIBON [Concomitant]
     Active Substance: RIBOFLAVIN
     Dosage: 20 MG, UNK
     Dates: start: 20141015, end: 20141207
  41. CHINESE MEDICINE [Concomitant]
     Active Substance: UNSPECIFIED INGREDIENT
     Dosage: 7.5 G, UNK
     Dates: start: 20141015, end: 20141113
  42. FUROSEMIDE. [Concomitant]
     Active Substance: FUROSEMIDE
     Dosage: 20 MG, UNK
     Dates: start: 20141106, end: 20141106
  43. SOLDEM 3A [Concomitant]
     Active Substance: CARBOHYDRATES\POTASSIUM CHLORIDE\SODIUM CHLORIDE\SODIUM LACTATE
     Dosage: 1000 ML, UNK
     Dates: start: 20141113, end: 20141113
  44. MEYLON [Concomitant]
     Active Substance: SODIUM BICARBONATE
     Dosage: 80 ML, UNK
     Dates: start: 20141030, end: 20141030
  45. IRRADIATED RED CELLS CONCENTRATES-LEUKOCYTES REDUCED [Concomitant]
     Active Substance: HUMAN RED BLOOD CELL
     Dosage: 1 DF, UNK
     Dates: start: 20141114, end: 20141114
  46. INOVAN [Concomitant]
     Active Substance: DOPAMINE HYDROCHLORIDE
     Dosage: 50 ML, UNK
     Dates: start: 20141207, end: 20141207
  47. LOXOPROFEN [Concomitant]
     Active Substance: LOXOPROFEN
     Dosage: 60 MG, UNK
     Dates: start: 20141114, end: 20141115
  48. OFATUMUMAB [Suspect]
     Active Substance: OFATUMUMAB
     Dosage: 2000 MG, QD
     Route: 041
     Dates: start: 20141106, end: 20141106
  49. CALONAL [Concomitant]
     Active Substance: ACETAMINOPHEN
     Dosage: 400 MG, UNK
     Dates: start: 20141030, end: 20141030
  50. RESTAMIN [Concomitant]
     Active Substance: DIPHENHYDRAMINE
     Indication: PREMEDICATION
     Dosage: 40 MG, UNK
     Dates: start: 20141015, end: 20141015
  51. ETODOLAC. [Concomitant]
     Active Substance: ETODOLAC
     Dosage: 400 MG, UNK
     Dates: start: 20141015, end: 20141027
  52. MAGMITT [Concomitant]
     Active Substance: MAGNESIUM OXIDE
     Dosage: 1980 MG, UNK
     Dates: start: 20141024, end: 20141028
  53. BAYASPIRIN [Concomitant]
     Active Substance: ASPIRIN
     Dosage: 100 MG, UNK
     Dates: start: 20141015, end: 20141207
  54. ALLOPURINOL. [Concomitant]
     Active Substance: ALLOPURINOL
     Dosage: 300 MG, UNK
     Dates: start: 20141015, end: 20141030
  55. FUROSEMIDE. [Concomitant]
     Active Substance: FUROSEMIDE
     Dosage: 20 MG, UNK
     Dates: start: 20141120, end: 20141120
  56. SOLDEM 3A [Concomitant]
     Active Substance: CARBOHYDRATES\POTASSIUM CHLORIDE\SODIUM CHLORIDE\SODIUM LACTATE
     Dosage: 1500 ML, UNK
     Dates: start: 20141204, end: 20141204
  57. MEYLON [Concomitant]
     Active Substance: SODIUM BICARBONATE
     Dosage: 80 ML, UNK
     Dates: start: 20141015, end: 20141015
  58. IRRADIATED RED CELLS CONCENTRATES-LEUKOCYTES REDUCED [Concomitant]
     Active Substance: HUMAN RED BLOOD CELL
     Dosage: 1 DF, UNK
     Dates: start: 20141014, end: 20141014
  59. LOXOPROFEN [Concomitant]
     Active Substance: LOXOPROFEN
     Dosage: 120 MG, UNK
     Dates: start: 20141105, end: 20141105
  60. OFATUMUMAB [Suspect]
     Active Substance: OFATUMUMAB
     Dosage: 2000 MG, QD
     Route: 041
     Dates: start: 20141030, end: 20141030
  61. BETAMETASONE [Suspect]
     Active Substance: BETAMETHASONE
     Dosage: 1 MG, UNK
     Route: 048
     Dates: start: 20141031, end: 20141111
  62. PREDONIN [Suspect]
     Active Substance: PREDNISOLONE
     Indication: PREMEDICATION
     Dosage: 100 MG, UNK
     Route: 065
     Dates: start: 20141015, end: 20141015
  63. PREDONIN [Suspect]
     Active Substance: PREDNISOLONE
     Dosage: 100 MG, UNK
     Dates: start: 20141120, end: 20141120
  64. CALONAL [Concomitant]
     Active Substance: ACETAMINOPHEN
     Dosage: 400 MG, UNK
     Dates: start: 20141127, end: 20141127
  65. ITRIZOLE [Concomitant]
     Active Substance: ITRACONAZOLE
     Indication: INFECTION PROPHYLAXIS
     Dosage: 200 MG, UNK
     Dates: start: 20141125, end: 20141207
  66. DIART [Concomitant]
     Active Substance: AZOSEMIDE
     Dosage: 30 MG, UNK
     Dates: start: 20141024, end: 20141207
  67. MAGMITT [Concomitant]
     Active Substance: MAGNESIUM OXIDE
     Dosage: 990 MG, UNK
     Dates: start: 20141021, end: 20141021
  68. METHYCOBAL [Concomitant]
     Active Substance: METHYLCOBALAMIN
     Dosage: 1500 ?G, UNK
     Dates: start: 20141015, end: 20141207
  69. CLARITIN REDITABS [Concomitant]
     Active Substance: LORATADINE
     Dosage: 10 MG, UNK
     Dates: start: 20141015, end: 20141207
  70. SOLDEM 3A [Concomitant]
     Active Substance: CARBOHYDRATES\POTASSIUM CHLORIDE\SODIUM CHLORIDE\SODIUM LACTATE
     Dosage: 1000 ML, UNK
     Dates: start: 20141023, end: 20141023
  71. SOLDEM 3A [Concomitant]
     Active Substance: CARBOHYDRATES\POTASSIUM CHLORIDE\SODIUM CHLORIDE\SODIUM LACTATE
     Dosage: 1000 ML, UNK
     Dates: start: 20141118, end: 20141127
  72. SOLDEM 3A [Concomitant]
     Active Substance: CARBOHYDRATES\POTASSIUM CHLORIDE\SODIUM CHLORIDE\SODIUM LACTATE
     Dosage: 1000 ML, UNK
     Dates: start: 20141205, end: 20141207
  73. MEYLON [Concomitant]
     Active Substance: SODIUM BICARBONATE
     Dosage: 80 ML, UNK
     Dates: start: 20141106, end: 20141106
  74. RHYTHMY [Concomitant]
     Active Substance: RILMAZAFONE HYDROCHLORIDE
     Dosage: 2 MG, UNK
     Dates: start: 20141129, end: 20141130
  75. LOXOPROFEN [Concomitant]
     Active Substance: LOXOPROFEN
     Dosage: 180 MG, UNK
     Dates: start: 20141103, end: 20141104
  76. LOXOPROFEN [Concomitant]
     Active Substance: LOXOPROFEN
     Dosage: 120 MG, UNK
     Dates: start: 20141118, end: 20141118
  77. LOXOPROFEN [Concomitant]
     Active Substance: LOXOPROFEN
     Dosage: 60 MG, UNK
     Dates: start: 20141207, end: 20141208
  78. OFATUMUMAB [Suspect]
     Active Substance: OFATUMUMAB
     Dosage: 2000 MG, QD
     Route: 041
     Dates: start: 20141120, end: 20141120
  79. PREDONIN [Suspect]
     Active Substance: PREDNISOLONE
     Dosage: 100 MG, UNK
     Dates: start: 20141030, end: 20141030
  80. PREDONIN [Suspect]
     Active Substance: PREDNISOLONE
     Dosage: 100 MG, UNK
     Dates: start: 20141204, end: 20141204
  81. CALONAL [Concomitant]
     Active Substance: ACETAMINOPHEN
     Dosage: 400 MG, UNK
     Dates: start: 20141106, end: 20141106
  82. RESTAMIN [Concomitant]
     Active Substance: DIPHENHYDRAMINE
     Dosage: 40 MG, UNK
     Dates: start: 20141023, end: 20141023
  83. BAKTAR [Concomitant]
     Active Substance: SULFAMETHOXAZOLE\TRIMETHOPRIM
     Indication: INFECTION PROPHYLAXIS
     Dosage: 1 DF, UNK
     Dates: start: 20141101, end: 20141110
  84. POLYGLOBIN-N [Concomitant]
     Dosage: 10 G, UNK
     Dates: start: 20141201, end: 20141201
  85. MIYA-BM FINE GRANULES [Concomitant]
     Dosage: 3 DF, UNK
     Dates: start: 20141015, end: 20141207
  86. MAGMITT [Concomitant]
     Active Substance: MAGNESIUM OXIDE
     Dosage: 660 MG, UNK
     Dates: start: 20141118, end: 20141118
  87. ALINAMIN F [Concomitant]
     Active Substance: FURSULTIAMINE HYDROCHLORIDE
     Dosage: 50 MG, UNK
     Dates: start: 20141031, end: 20141207
  88. FUROSEMIDE. [Concomitant]
     Active Substance: FUROSEMIDE
     Dosage: 20 MG, UNK
     Dates: start: 20141015, end: 20141015
  89. FUROSEMIDE. [Concomitant]
     Active Substance: FUROSEMIDE
     Dosage: 20 MG, UNK
     Dates: start: 20141127, end: 20141127
  90. MEYLON [Concomitant]
     Active Substance: SODIUM BICARBONATE
     Dosage: 80 ML, UNK
     Dates: start: 20141113, end: 20141113
  91. ZOMETA [Concomitant]
     Active Substance: ZOLEDRONIC ACID
     Dosage: 4 MG, UNK
     Dates: start: 20141024, end: 20141024
  92. SOLITA-T NO.1 [Concomitant]
     Dosage: 500 ML, UNK
     Dates: start: 20141112, end: 20141112
  93. ALPINY [Concomitant]
     Active Substance: ACETAMINOPHEN
     Dosage: 2 DF, UNK
     Dates: start: 20141208, end: 20141208
  94. LOXOPROFEN [Concomitant]
     Active Substance: LOXOPROFEN
     Dosage: 60 MG, UNK
     Dates: start: 20141111, end: 20141112
  95. LOXOPROFEN [Concomitant]
     Active Substance: LOXOPROFEN
     Dosage: 60 MG, UNK
     Dates: start: 20141117, end: 20141117
  96. LOXOPROFEN [Concomitant]
     Active Substance: LOXOPROFEN
     Dosage: 60 MG, UNK
     Dates: start: 20141123, end: 20141126
  97. SENNOSIDE [Concomitant]
     Active Substance: SENNOSIDES
     Dosage: 12 MG, UNK
     Dates: start: 20141126, end: 20141126
  98. BETAMETASONE [Suspect]
     Active Substance: BETAMETHASONE
     Dosage: 4 MG, UNK
     Route: 048
     Dates: start: 20141112, end: 20141207
  99. PREDONIN [Suspect]
     Active Substance: PREDNISOLONE
     Dosage: 100 MG, UNK
     Route: 065
     Dates: start: 20141023, end: 20141023
  100. PREDONIN [Suspect]
     Active Substance: PREDNISOLONE
     Dosage: 100 MG, UNK
     Dates: start: 20141113, end: 20141113
  101. CALONAL [Concomitant]
     Active Substance: ACETAMINOPHEN
     Indication: PREMEDICATION
     Dosage: 400 MG, UNK
     Dates: start: 20141015, end: 20141015
  102. CALONAL [Concomitant]
     Active Substance: ACETAMINOPHEN
     Dosage: 400 MG, UNK
     Dates: start: 20141204, end: 20141204
  103. RESTAMIN [Concomitant]
     Active Substance: DIPHENHYDRAMINE
     Dosage: 40 MG, UNK
     Dates: start: 20141106, end: 20141106
  104. RESTAMIN [Concomitant]
     Active Substance: DIPHENHYDRAMINE
     Dosage: 40 MG, UNK
     Dates: start: 20141127, end: 20141127
  105. NEXIUM [Concomitant]
     Active Substance: ESOMEPRAZOLE MAGNESIUM
     Dosage: 20 MG, UNK
     Dates: start: 20141015, end: 20141207
  106. MAGMITT [Concomitant]
     Active Substance: MAGNESIUM OXIDE
     Dosage: 1980 MG, UNK
     Dates: start: 20141015, end: 20141020
  107. FOLIAMIN [Concomitant]
     Active Substance: FOLIC ACID
     Dosage: 5 MG, UNK
     Dates: start: 20141015, end: 20141023
  108. FUROSEMIDE. [Concomitant]
     Active Substance: FUROSEMIDE
     Dosage: 20 MG, UNK
     Dates: start: 20141023, end: 20141023
  109. FUROSEMIDE. [Concomitant]
     Active Substance: FUROSEMIDE
     Dosage: 20 MG, UNK
     Dates: start: 20141204, end: 20141204
  110. SOLDEM 3A [Concomitant]
     Active Substance: CARBOHYDRATES\POTASSIUM CHLORIDE\SODIUM CHLORIDE\SODIUM LACTATE
     Dosage: 1000 ML, UNK
     Dates: start: 20141106, end: 20141106
  111. MEYLON [Concomitant]
     Active Substance: SODIUM BICARBONATE
     Dosage: 80 ML, UNK
     Dates: start: 20141023, end: 20141023
  112. MEYLON [Concomitant]
     Active Substance: SODIUM BICARBONATE
     Dosage: 80 ML, UNK
     Dates: start: 20141204, end: 20141204
  113. IRRADIATED RED CELLS CONCENTRATES-LEUKOCYTES REDUCED [Concomitant]
     Active Substance: HUMAN RED BLOOD CELL
     Dosage: 1 DF, UNK
     Dates: start: 20141205, end: 20141205
  114. SOLITA-T NO.1 [Concomitant]
     Dosage: 1000 ML, UNK
     Dates: start: 20141207, end: 20141207
  115. LOXOPROFEN [Concomitant]
     Active Substance: LOXOPROFEN
     Dosage: 60 MG, UNK
     Dates: start: 20141106, end: 20141106
  116. OFATUMUMAB [Suspect]
     Active Substance: OFATUMUMAB
     Dosage: 2000 MG, QD
     Route: 041
     Dates: start: 20141127, end: 20141127
  117. PREDONIN [Suspect]
     Active Substance: PREDNISOLONE
     Dosage: 100 MG, UNK
     Dates: start: 20141106, end: 20141106
  118. RESTAMIN [Concomitant]
     Active Substance: DIPHENHYDRAMINE
     Dosage: 40 MG, UNK
     Dates: start: 20141030, end: 20141030

REACTIONS (2)
  - Urinary tract infection [Recovering/Resolving]
  - Sepsis [Fatal]

NARRATIVE: CASE EVENT DATE: 20141118
